FAERS Safety Report 24657642 (Version 1)
Quarter: 2024Q4

REPORT INFORMATION
  Report Type: Spontaneous
  Country: CA (occurrence: CA)
  Receive Date: 20241125
  Receipt Date: 20241125
  Transmission Date: 20250115
  Serious: Yes (Other)
  Sender: Haleon PLC
  Company Number: CA-HALEON-2210380

PATIENT
  Age: 57 Year
  Sex: Female

DRUGS (1)
  1. ADVIL [Suspect]
     Active Substance: IBUPROFEN
     Indication: Pain

REACTIONS (2)
  - Lung neoplasm malignant [Unknown]
  - Hepatic cirrhosis [Unknown]
